FAERS Safety Report 7299214-5 (Version None)
Quarter: 2011Q1

REPORT INFORMATION
  Report Type: 
  Country: None (occurrence: None)
  Receive Date: 20110217
  Receipt Date: 20110215
  Transmission Date: 20110831
  Serious: Yes (Hospitalization)
  Sender: FDA-Public Use
  Company Number: GXKR2011DE00930

PATIENT
  Sex: Female

DRUGS (2)
  1. DOXEPIN [Suspect]
     Route: 065
  2. WARFARIN [Concomitant]
     Indication: THROMBOSIS PROPHYLAXIS
     Dosage: 4 MG DAILY
     Route: 065
     Dates: start: 20080219

REACTIONS (2)
  - TOXICITY TO VARIOUS AGENTS [None]
  - MEDICATION ERROR [None]
